FAERS Safety Report 25871260 (Version 1)
Quarter: 2025Q4

REPORT INFORMATION
  Report Type: Spontaneous
  Country: US (occurrence: US)
  Receive Date: 20251001
  Receipt Date: 20251001
  Transmission Date: 20260118
  Serious: No
  Sender: RECKITT BENCKISER
  Company Number: US-Indivior Limited-INDV-159688-2025

PATIENT
  Sex: Female

DRUGS (2)
  1. SUBLOCADE [Suspect]
     Active Substance: BUPRENORPHINE
     Dosage: UNK
     Dates: start: 20250311
  2. SUBLOCADE [Suspect]
     Active Substance: BUPRENORPHINE

REACTIONS (1)
  - Accidental exposure to product [Recovered/Resolved]

NARRATIVE: CASE EVENT DATE: 20250311
